FAERS Safety Report 5650660-2 (Version None)
Quarter: 2008Q1

REPORT INFORMATION
  Report Type: 
  Country: None (occurrence: None)
  Receive Date: 20080305
  Receipt Date: 20080225
  Transmission Date: 20080703
  Serious: Yes (Hospitalization, Other)
  Sender: FDA-Public Use
  Company Number: PHEH2006US07275

PATIENT
  Age: 66 Year
  Sex: Male
  Weight: 58.503 kg

DRUGS (8)
  1. ZOMETA [Suspect]
     Indication: METASTASES TO BONE
     Dosage: 4 MG, QW3
     Route: 042
     Dates: start: 20020301
  2. ATENOLOL [Concomitant]
  3. MEVACOR [Concomitant]
  4. TOPROL-XL [Concomitant]
     Dosage: 50 MG, QD
     Route: 048
  5. ZOCOR [Concomitant]
     Dosage: 80 MG, QD
     Route: 048
  6. ECOTRIN [Concomitant]
     Dosage: 325 MG, UNK
  7. LUPRON [Concomitant]
     Dosage: Q 3 MONTHS
  8. PAXIL [Concomitant]
     Dosage: 20 MG, QD
     Route: 048

REACTIONS (17)
  - ANHEDONIA [None]
  - ANXIETY [None]
  - BONE DISORDER [None]
  - CHRONIC SINUSITIS [None]
  - DENTAL OPERATION [None]
  - FLANK PAIN [None]
  - GINGIVITIS [None]
  - HYDRONEPHROSIS [None]
  - INFLAMMATION [None]
  - LUNG HYPERINFLATION [None]
  - NAUSEA [None]
  - OSTEONECROSIS [None]
  - PAIN [None]
  - PAIN IN JAW [None]
  - RENAL COLIC [None]
  - RENAL HAEMORRHAGE [None]
  - URETERIC DILATATION [None]
